FAERS Safety Report 7710138-9 (Version None)
Quarter: 2011Q3

REPORT INFORMATION
  Report Type: 
  Country: None (occurrence: None)
  Receive Date: 20110825
  Receipt Date: 20110816
  Transmission Date: 20111222
  Serious: Yes (Other)
  Sender: FDA-Public Use
  Company Number: AU-ASTRAZENECA-2011SE42057

PATIENT
  Age: 11433 Day
  Sex: Female
  Weight: 70 kg

DRUGS (3)
  1. LIDOCAINE AND EPINEPHRINE [Suspect]
     Indication: LOCAL ANAESTHESIA
     Route: 065
     Dates: start: 20110630, end: 20110630
  2. SODIUM BICARBONATE [Concomitant]
     Dates: start: 20110630, end: 20110630
  3. KEFLEX [Concomitant]
     Indication: ORAL INFECTION
     Route: 048
     Dates: start: 20110630, end: 20110630

REACTIONS (3)
  - LIP SWELLING [None]
  - ANGIOEDEMA [None]
  - DRUG HYPERSENSITIVITY [None]
